FAERS Safety Report 6307659-2 (Version None)
Quarter: 2009Q3

REPORT INFORMATION
  Report Type: 
  Country: None (occurrence: None)
  Receive Date: 20090813
  Receipt Date: 20090806
  Transmission Date: 20100115
  Serious: Yes (Hospitalization)
  Sender: FDA-Public Use
  Company Number: PHHO2009ES05948

PATIENT
  Sex: Female
  Weight: 94 kg

DRUGS (4)
  1. ACZ885 ACZ+ [Suspect]
     Indication: RHEUMATOID ARTHRITIS
     Dosage: 300 MG EVERY 4 WEEKS
     Route: 030
     Dates: start: 20080218, end: 20090413
  2. METHOTREXATE [Concomitant]
     Indication: RHEUMATOID ARTHRITIS
     Dosage: UNK
     Dates: start: 20080218
  3. FOLIC ACID [Concomitant]
     Indication: RHEUMATOID ARTHRITIS
     Dosage: UNK
     Dates: start: 20080218
  4. MTX [Concomitant]

REACTIONS (5)
  - DISEASE PROGRESSION [None]
  - JOINT EFFUSION [None]
  - KNEE ARTHROPLASTY [None]
  - LOCALISED INFECTION [None]
  - RHEUMATOID ARTHRITIS [None]
